FAERS Safety Report 9536964 (Version 1)
Quarter: 2013Q3

REPORT INFORMATION
  Report Type: Spontaneous
  Country: US (occurrence: US)
  Receive Date: 20130919
  Receipt Date: 20130919
  Transmission Date: 20140515
  Serious: Yes (Hospitalization)
  Sender: FDA-Public Use
  Company Number: US-FRI-1000048913

PATIENT
  Age: 45 Year
  Sex: Female

DRUGS (1)
  1. LINZESS [Suspect]
     Dosage: 145MCG
     Route: 048
     Dates: start: 2013, end: 2013

REACTIONS (1)
  - Tetany [Recovered/Resolved]
